FAERS Safety Report 22154204 (Version 1)
Quarter: 2023Q1

REPORT INFORMATION
  Report Type: Other
  Country: CN (occurrence: CN)
  Receive Date: 20230330
  Receipt Date: 20230330
  Transmission Date: 20230418
  Serious: Yes (Hospitalization, Other)
  Sender: FDA-Public Use
  Company Number: None

PATIENT
  Age: 1 Year
  Sex: Male
  Weight: 11.5 kg

DRUGS (1)
  1. PROGRAF [Suspect]
     Active Substance: TACROLIMUS
     Indication: Prophylaxis against transplant rejection
     Route: 048
     Dates: start: 20220415, end: 20230314

REACTIONS (13)
  - Oral herpes [Recovering/Resolving]
  - Trismus [Unknown]
  - Dysphagia [Unknown]
  - Pyrexia [Recovering/Resolving]
  - Mouth ulceration [Unknown]
  - Pharyngeal erythema [Unknown]
  - Tonsillar hypertrophy [Unknown]
  - Lip swelling [Unknown]
  - Dry mouth [Unknown]
  - Leukoplakia oral [Unknown]
  - Pharyngeal erythema [Unknown]
  - Hypophagia [Unknown]
  - Streptococcal infection [Unknown]

NARRATIVE: CASE EVENT DATE: 20230301
